FAERS Safety Report 19447420 (Version 1)
Quarter: 2021Q2

REPORT INFORMATION
  Report Type: Spontaneous
  Country: US (occurrence: US)
  Receive Date: 20210621
  Receipt Date: 20210621
  Transmission Date: 20210717
  Serious: Yes (Disabling)
  Sender: FDA-Public Use
  Company Number: None

PATIENT
  Age: 80 Year
  Sex: Male
  Weight: 94.95 kg

DRUGS (2)
  1. VALSARTAN. [Suspect]
     Active Substance: VALSARTAN
     Indication: HYPERTENSION
     Dosage: ?          QUANTITY:1 TABLET(S);?
     Route: 048
     Dates: start: 20210201
  2. CREATINE [Concomitant]
     Active Substance: CREATINE

REACTIONS (6)
  - Parosmia [None]
  - Dry mouth [None]
  - Alopecia [None]
  - Taste disorder [None]
  - Weight decreased [None]
  - Drug ineffective [None]

NARRATIVE: CASE EVENT DATE: 20210201
